FAERS Safety Report 22152612 (Version 1)
Quarter: 2023Q1

REPORT INFORMATION
  Report Type: Spontaneous
  Country: CN (occurrence: CN)
  Receive Date: 20230329
  Receipt Date: 20230329
  Transmission Date: 20230417
  Serious: Yes (Other)
  Sender: FDA-Public Use
  Company Number: None

PATIENT
  Age: 77 Year
  Sex: Female
  Weight: 50 kg

DRUGS (5)
  1. CYCLOPHOSPHAMIDE [Suspect]
     Active Substance: CYCLOPHOSPHAMIDE
     Indication: Glomerulonephritis acute
     Dosage: 0.4 G, QD, DILUTED WITH 0.9% OF SODIUM CHLORIDE 250 ML
     Route: 041
     Dates: start: 20230207, end: 20230207
  2. SODIUM CHLORIDE [Suspect]
     Active Substance: SODIUM CHLORIDE
     Indication: Medication dilution
     Dosage: 250 ML, QD (CONCENTRATION: 0.9%, DOSAGE FORM: INJECTION)  USED TO DILUTE 0.4 G CYCLOPHOSPHAMIDE
     Route: 041
     Dates: start: 20230207, end: 20230207
  3. SODIUM CHLORIDE [Suspect]
     Active Substance: SODIUM CHLORIDE
     Dosage: 100 ML, QD (CONCENTRATION 0.9%, DOSAGE FORM: INJECTION) USED TO DILUTE 60 MG METHYLPREDNISOLONE SODI
     Route: 041
     Dates: start: 20230130, end: 20230210
  4. METHYLPREDNISOLONE SODIUM SUCCINATE [Suspect]
     Active Substance: METHYLPREDNISOLONE SODIUM SUCCINATE
     Indication: Glomerulonephritis acute
     Dosage: 60 MG, QD DILUTED WITH 0.9% OF SODIUM CHLORIDE 100 ML
     Route: 041
     Dates: start: 20230130, end: 20230210
  5. ENOXAPARIN SODIUM [Suspect]
     Active Substance: ENOXAPARIN SODIUM
     Indication: Glomerulonephritis acute
     Dosage: 4000 IU, QD
     Route: 058
     Dates: start: 20230131, end: 20230220

REACTIONS (1)
  - Gastrointestinal haemorrhage [Not Recovered/Not Resolved]

NARRATIVE: CASE EVENT DATE: 20230210
